FAERS Safety Report 20039412 (Version 1)
Quarter: 2021Q4

REPORT INFORMATION
  Report Type: Report from Study
  Country: US (occurrence: US)
  Receive Date: 20211105
  Receipt Date: 20211105
  Transmission Date: 20220303
  Serious: Yes (Other)
  Sender: FDA-Public Use
  Company Number: US-GILEAD-2021-0555547

PATIENT
  Age: 29 Year
  Sex: Male

DRUGS (2)
  1. BICTEGRAVIR\EMTRICITABINE\TENOFOVIR ALAFENAMIDE [Suspect]
     Active Substance: BICTEGRAVIR\EMTRICITABINE\TENOFOVIR ALAFENAMIDE
     Indication: HIV infection
     Dosage: BIKTARVY 50-200-25MG/ DAYS SUPPLY= 30/ QTY=30
     Route: 065
     Dates: start: 202110
  2. SULFAMETHIZOLE [Suspect]
     Active Substance: SULFAMETHIZOLE
     Indication: Antifungal prophylaxis
     Dosage: 800 MG
     Route: 065
     Dates: start: 20211022

REACTIONS (3)
  - Lymphoma [Unknown]
  - Syphilis [Unknown]
  - Hypoacusis [Unknown]

NARRATIVE: CASE EVENT DATE: 20211001
